FAERS Safety Report 6706197-2 (Version None)
Quarter: 2010Q2

REPORT INFORMATION
  Report Type: 
  Country: None (occurrence: None)
  Receive Date: 20100503
  Receipt Date: 20100428
  Transmission Date: 20101027
  Serious: Yes (Hospitalization)
  Sender: FDA-Public Use
  Company Number: FR-SANOFI-AVENTIS-2010SA024409

PATIENT
  Age: 63 Year
  Sex: Female

DRUGS (12)
  1. ZOLPIDEM [Suspect]
     Route: 048
  2. CELLCEPT [Suspect]
     Indication: LIVER TRANSPLANT
     Route: 048
     Dates: start: 20090101
  3. NEORAL [Concomitant]
     Indication: LIVER TRANSPLANT
  4. NEO-MERCAZOLE TAB [Concomitant]
     Route: 048
  5. RAMIPRIL [Concomitant]
     Route: 048
  6. HYPERIUM [Concomitant]
  7. INIPOMP [Concomitant]
     Route: 048
  8. TAHOR [Concomitant]
     Route: 048
  9. DEROXAT [Concomitant]
     Route: 048
  10. TOPALGIC [Concomitant]
     Route: 048
  11. NOVOMIX [Concomitant]
  12. NOVORAPID [Concomitant]

REACTIONS (6)
  - ANTEROGRADE AMNESIA [None]
  - CONFUSIONAL STATE [None]
  - CONVULSION [None]
  - GRAND MAL CONVULSION [None]
  - MALAISE [None]
  - TONGUE BITING [None]
